FAERS Safety Report 4908899-7 (Version None)
Quarter: 2006Q1

REPORT INFORMATION
  Report Type: 
  Country: None (occurrence: None)
  Receive Date: 20060210
  Receipt Date: 20060206
  Transmission Date: 20060701
  Serious: Yes (Other)
  Sender: FDA-Public Use
  Company Number: GB-BRISTOL-MYERS SQUIBB COMPANY-13272513

PATIENT
  Age: 40 Year
  Sex: Female

DRUGS (9)
  1. EFAVIRENZ [Suspect]
     Indication: HIV INFECTION
     Dates: start: 20000301
  2. ZIDOVUDINE [Suspect]
     Indication: HIV INFECTION
     Dates: start: 20000301
  3. LAMIVUDINE [Suspect]
     Indication: HIV INFECTION
     Dates: start: 20000301
  4. NEVIRAPINE [Suspect]
     Indication: HIV INFECTION
  5. DICLOFENAC [Concomitant]
  6. LIGNOCAINE [Concomitant]
  7. METHYLPREDNISOLONE [Concomitant]
  8. SULFASALAZINE [Concomitant]
  9. PREDNISOLONE [Concomitant]

REACTIONS (8)
  - ARTHRALGIA [None]
  - CREPITATIONS [None]
  - IMMUNE RECONSTITUTION SYNDROME [None]
  - JOINT EFFUSION [None]
  - JOINT STIFFNESS [None]
  - NIGHTMARE [None]
  - RHEUMATOID ARTHRITIS [None]
  - SYNOVITIS [None]
